FAERS Safety Report 7757926-0 (Version None)
Quarter: 2011Q3

REPORT INFORMATION
  Report Type: 
  Country: None (occurrence: None)
  Receive Date: 20110919
  Receipt Date: 20110906
  Transmission Date: 20111222
  Serious: Yes (Other)
  Sender: FDA-Public Use
  Company Number: US-JNJCP-30000070353

PATIENT
  Age: 83 Year
  Sex: Female
  Weight: 53 kg

DRUGS (7)
  1. ENALAPRIL MALEATE [Concomitant]
     Dosage: SINCE 2003
  2. CORTAID ADVANCED ANTI-ITCH CREAM USA 381371040384 8137104038USA [Suspect]
     Indication: EYELIDS PRURITUS
     Dosage: USED A TOTAL OF THREE TIMES
     Route: 061
     Dates: start: 20110903, end: 20110904
  3. LESCOL [Concomitant]
     Dosage: SINCE 2003
  4. BABY ASPIRIN-3X PER WEEK. [Concomitant]
     Indication: PROPHYLAXIS
     Dosage: 3 TIMES PER WEEK SINCE 2003
  5. METOPROLOL TARTRATE [Concomitant]
     Dosage: SINCE 2003
  6. PREDNISOLONE DROPS [Concomitant]
     Dosage: TWICE A DAY
  7. THERA TEARS [Concomitant]
     Dosage: AS NEEDED

REACTIONS (4)
  - DRUG ADMINISTERED AT INAPPROPRIATE SITE [None]
  - APPLICATION SITE SWELLING [None]
  - ERYTHEMA [None]
  - SWELLING FACE [None]
